FAERS Safety Report 5477823-3 (Version None)
Quarter: 2007Q4

REPORT INFORMATION
  Report Type: 
  Country: None (occurrence: None)
  Receive Date: 20071004
  Receipt Date: 20071003
  Transmission Date: 20080405
  Serious: Yes (Hospitalization)
  Sender: FDA-Public Use
  Company Number: JP-MERCK-0710USA00577

PATIENT
  Age: 56 Year
  Sex: Male

DRUGS (3)
  1. PROPECIA [Suspect]
     Indication: MALE PATTERN BALDNESS
     Route: 048
     Dates: start: 20070508, end: 20070823
  2. PROPECIA [Suspect]
     Route: 048
     Dates: start: 20070828, end: 20070903
  3. ZYLORIC [Suspect]
     Indication: HYPERURICAEMIA
     Route: 048

REACTIONS (1)
  - HEPATIC FUNCTION ABNORMAL [None]
